FAERS Safety Report 22678869 (Version 4)
Quarter: 2024Q3

REPORT INFORMATION
  Report Type: Spontaneous
  Country: US (occurrence: US)
  Receive Date: 20230706
  Receipt Date: 20240905
  Transmission Date: 20241016
  Serious: No
  Sender: ROCHE
  Company Number: US-ROCHE-3318679

PATIENT
  Age: 62 Year
  Sex: Female

DRUGS (3)
  1. TNKASE [Suspect]
     Active Substance: TENECTEPLASE
     Indication: Ischaemic stroke
     Route: 065
  2. TNKASE [Suspect]
     Active Substance: TENECTEPLASE
     Route: 065
     Dates: start: 20240716
  3. RAMIPRIL [Interacting]
     Active Substance: RAMIPRIL
     Indication: Product used for unknown indication
     Route: 065

REACTIONS (3)
  - Swelling [Recovered/Resolved]
  - Drug interaction [Unknown]
  - Off label use [Unknown]
